FAERS Safety Report 24999471 (Version 1)
Quarter: 2025Q1

REPORT INFORMATION
  Report Type: Spontaneous
  Country: US (occurrence: US)
  Receive Date: 20250222
  Receipt Date: 20250222
  Transmission Date: 20250408
  Serious: No
  Sender: SANOFI AVENTIS
  Company Number: US-SA-2025SA049752

PATIENT
  Sex: Female

DRUGS (2)
  1. DUPIXENT [Suspect]
     Active Substance: DUPILUMAB
     Indication: Dermatitis atopic
     Route: 058
  2. DUPIXENT [Suspect]
     Active Substance: DUPILUMAB
     Route: 058

REACTIONS (7)
  - Nasal congestion [Unknown]
  - Lip swelling [Unknown]
  - Eye swelling [Unknown]
  - Ocular hyperaemia [Unknown]
  - Pruritus [Recovering/Resolving]
  - Arthralgia [Unknown]
  - Rash [Recovering/Resolving]
